FAERS Safety Report 17171797 (Version 1)
Quarter: 2019Q4

REPORT INFORMATION
  Report Type: Spontaneous
  Country: US (occurrence: US)
  Receive Date: 20191126
  Receipt Date: 20191126
  Transmission Date: 20200122
  Serious: No
  Sender: FDA-Public Use
  Company Number: None

PATIENT
  Age: 41 Year
  Sex: Male

DRUGS (1)
  1. GLEOSTINE [Suspect]
     Active Substance: LOMUSTINE
     Route: 048
     Dates: start: 201901, end: 201908

REACTIONS (2)
  - Bone marrow failure [None]
  - Therapy cessation [None]

NARRATIVE: CASE EVENT DATE: 20190831
